FAERS Safety Report 8237039-4 (Version None)
Quarter: 2012Q1

REPORT INFORMATION
  Report Type: 
  Country: None (occurrence: None)
  Receive Date: 20120327
  Receipt Date: 20120323
  Transmission Date: 20120608
  Serious: Yes (Death, Hospitalization)
  Sender: FDA-Public Use
  Company Number: PHHY2012MX025916

PATIENT
  Sex: Female

DRUGS (3)
  1. AMIODARONE HCL [Concomitant]
     Indication: HYPERTENSION
  2. ENALAPRIL MALEATE [Concomitant]
     Indication: HYPERTENSION
  3. RASILEZ [Suspect]
     Indication: HYPERTENSION
     Dosage: 1 DF, QD
     Route: 048
     Dates: start: 20111001

REACTIONS (2)
  - MYOCARDIAL INFARCTION [None]
  - CEREBROVASCULAR ACCIDENT [None]
